FAERS Safety Report 20244388 (Version 1)
Quarter: 2021Q4

REPORT INFORMATION
  Report Type: Spontaneous
  Country: US (occurrence: US)
  Receive Date: 20211229
  Receipt Date: 20211229
  Transmission Date: 20220304
  Serious: Yes (Other)
  Sender: FDA-Public Use
  Company Number: US-RISINGPHARMA-US-2021RISLIT00016

PATIENT
  Age: 61 Year
  Sex: Male

DRUGS (1)
  1. DOXYCYCLINE HYCLATE [Suspect]
     Active Substance: DOXYCYCLINE HYCLATE
     Indication: Dermatomyositis
     Route: 065

REACTIONS (2)
  - Gastric mucosal lesion [Recovered/Resolved]
  - Product use in unapproved indication [Unknown]
